FAERS Safety Report 16064676 (Version 1)
Quarter: 2019Q1

REPORT INFORMATION
  Report Type: Spontaneous
  Country: DE (occurrence: DE)
  Receive Date: 20190312
  Receipt Date: 20190312
  Transmission Date: 20190418
  Serious: Yes (Disabling)
  Sender: FDA-Public Use
  Company Number: PHHY2019DE053245

PATIENT
  Age: 78 Year
  Sex: Female

DRUGS (6)
  1. RIVASTIGMIN 1 A PHARMA [Suspect]
     Active Substance: RIVASTIGMINE
     Dosage: 2 DF, BID
     Route: 065
  2. ANTICOAGULANTS [Concomitant]
     Active Substance: UNSPECIFIED INGREDIENT
     Indication: PRODUCT USED FOR UNKNOWN INDICATION
     Dosage: UNK
     Route: 065
  3. LEVODOPA [Concomitant]
     Active Substance: LEVODOPA
     Indication: PRODUCT USED FOR UNKNOWN INDICATION
     Dosage: UNK
     Route: 065
  4. RIVASTIGMIN 1 A PHARMA [Suspect]
     Active Substance: RIVASTIGMINE
     Dosage: 3 DF (1-0-2)
     Route: 065
  5. RIVASTIGMIN 1 A PHARMA [Suspect]
     Active Substance: RIVASTIGMINE
     Indication: PARKINSON^S DISEASE
     Dosage: 1 DF, QD
     Route: 065
  6. INSULIN [Concomitant]
     Active Substance: INSULIN NOS
     Indication: PRODUCT USED FOR UNKNOWN INDICATION
     Dosage: UNK UNK, QID
     Route: 065

REACTIONS (8)
  - Hypotension [Unknown]
  - Decreased appetite [Unknown]
  - Dreamy state [Unknown]
  - Vomiting [Unknown]
  - General physical health deterioration [Unknown]
  - Hallucination [Not Recovered/Not Resolved]
  - Movement disorder [Not Recovered/Not Resolved]
  - Incorrect dose administered [Unknown]
